FAERS Safety Report 8238470-3 (Version None)
Quarter: 2012Q1

REPORT INFORMATION
  Report Type: 
  Country: None (occurrence: None)
  Receive Date: 20120309
  Receipt Date: 20100308
  Transmission Date: 20120608
  Serious: No
  Sender: FDA-Public Use
  Company Number: PHHY2010US06229

PATIENT
  Age: 51 Year
  Sex: Female
  Weight: 53.5244 kg

DRUGS (2)
  1. ACETAMINOPHEN [Concomitant]
  2. EXTAVIA [Suspect]
     Indication: MULTIPLE SCLEROSIS
     Dosage: 0.3 MG, QOD, SUBCUTANEOUS
     Route: 058
     Dates: start: 20100115

REACTIONS (4)
  - SKIN DISCOLOURATION [None]
  - MYALGIA [None]
  - ABDOMINAL PAIN UPPER [None]
  - SKIN REACTION [None]
